FAERS Safety Report 14612707 (Version 9)
Quarter: 2019Q2

REPORT INFORMATION
  Report Type: Report from Study
  Country: DE (occurrence: DE)
  Receive Date: 20180308
  Receipt Date: 20190625
  Transmission Date: 20190711
  Serious: Yes (Hospitalization, Disabling, Other)
  Sender: FDA-Public Use
  Company Number: DE-ROCHE-2077243

PATIENT
  Age: 51 Year
  Sex: Female

DRUGS (8)
  1. ORTOTON [METHOCARBAMOL] [Concomitant]
     Dosage: FILM COATED TABLET
     Route: 065
  2. IBUPROFEN. [Concomitant]
     Active Substance: IBUPROFEN
     Indication: PAIN
     Route: 048
  3. TILIDIN [Concomitant]
     Active Substance: NALOXONE HYDROCHLORIDE\TILIDINE HYDROCHLORIDE
     Indication: PAIN
     Dosage: 50/4 MG
     Route: 048
  4. SPASMEX [TROSPIUM CHLORIDE] [Concomitant]
  5. OCREVUS [Suspect]
     Active Substance: OCRELIZUMAB
     Indication: MULTIPLE SCLEROSIS
     Route: 042
     Dates: start: 20180213, end: 20180213
  6. OCREVUS [Suspect]
     Active Substance: OCRELIZUMAB
     Dosage: 2ND INFUSION, 28/AUG/2018 (3RD INFUSION),  11/MAR/2019
     Route: 042
     Dates: start: 20180227
  7. DEKRISTOL [Concomitant]
     Active Substance: CHOLECALCIFEROL
     Indication: VITAMIN D DEFICIENCY
     Route: 048
  8. SATIVEX [Concomitant]
     Active Substance: NABIXIMOLS
     Indication: MUSCLE SPASTICITY
     Route: 048

REACTIONS (15)
  - Gait disturbance [Recovering/Resolving]
  - Influenza [Recovered/Resolved]
  - Vomiting [Unknown]
  - Swelling face [Recovering/Resolving]
  - Loss of control of legs [Recovering/Resolving]
  - Blood iron decreased [Recovered/Resolved]
  - Cystitis noninfective [Recovering/Resolving]
  - White blood cell count increased [Recovered/Resolved]
  - Body temperature increased [Recovered/Resolved]
  - Oropharyngeal pain [Recovered/Resolved]
  - Nasopharyngitis [Recovering/Resolving]
  - Fatigue [Recovered/Resolved]
  - Fatigue [Recovering/Resolving]
  - Nausea [Recovered/Resolved]
  - Menorrhagia [Recovered/Resolved]

NARRATIVE: CASE EVENT DATE: 20180214
